FAERS Safety Report 15800630 (Version 3)
Quarter: 2019Q2

REPORT INFORMATION
  Report Type: Spontaneous
  Country: JP (occurrence: JP)
  Receive Date: 20190108
  Receipt Date: 20190630
  Transmission Date: 20190711
  Serious: Yes (Hospitalization, Other)
  Sender: FDA-Public Use
  Company Number: JP-AMGEN-JPNSP2018187518

PATIENT
  Age: 69 Year
  Sex: Female
  Weight: 44 kg

DRUGS (3)
  1. PREDNISOLONE. [Concomitant]
     Active Substance: PREDNISOLONE
     Indication: SYSTEMIC LUPUS ERYTHEMATOSUS
     Dosage: 5 MILLIGRAM, QD
     Route: 048
  2. DENOTAS [Concomitant]
     Active Substance: CALCIUM CARBONATE\CHOLECALCIFEROL\MAGNESIUM CARBONATE
     Indication: OSTEOPOROSIS
     Dosage: UNK UNK, QD
     Route: 048
  3. PRALIA [Suspect]
     Active Substance: DENOSUMAB
     Indication: OSTEOPOROSIS
     Dosage: 60 MILLIGRAM
     Route: 058
     Dates: start: 201605, end: 201806

REACTIONS (3)
  - Atypical femur fracture [Recovering/Resolving]
  - Bone hypertrophy [Unknown]
  - Pain in extremity [Unknown]

NARRATIVE: CASE EVENT DATE: 2018
